FAERS Safety Report 12454719 (Version 3)
Quarter: 2016Q3

REPORT INFORMATION
  Report Type: Report from Study
  Country: DE (occurrence: DE)
  Receive Date: 20160610
  Receipt Date: 20160705
  Transmission Date: 20161109
  Serious: Yes (Life-Threatening, Hospitalization)
  Sender: FDA-Public Use
  Company Number: DE-AMGEN-DEUCT2016073603

PATIENT
  Age: 51 Year
  Sex: Female

DRUGS (9)
  1. 5-FU [Suspect]
     Active Substance: FLUOROURACIL
     Indication: COLORECTAL CANCER METASTATIC
     Dosage: 2400 MG/M2, UNK
     Route: 042
     Dates: start: 20160426, end: 20160524
  2. FOLINIC ACID [Suspect]
     Active Substance: LEUCOVORIN
     Indication: COLORECTAL CANCER METASTATIC
     Dosage: 400 MG/M2, UNK
     Route: 042
     Dates: start: 20160426, end: 20160524
  3. PANITUMUMAB [Suspect]
     Active Substance: PANITUMUMAB
     Indication: COLORECTAL CANCER METASTATIC
     Dosage: 409.2 MG, UNK
     Route: 042
     Dates: start: 20160426
  4. FENTANYL. [Concomitant]
     Active Substance: FENTANYL
     Dosage: 0.075 MUG/HOUR (EVERY THIRD DAY)
     Dates: start: 20160426
  5. CEFUROXIME. [Concomitant]
     Active Substance: CEFUROXIME
     Indication: PERITONITIS
     Dosage: 1500 MUG, QD
     Route: 042
     Dates: start: 20160601
  6. MONO-EMBOLEX [Concomitant]
     Active Substance: CERTOPARIN SODIUM
     Indication: THROMBOSIS PROPHYLAXIS
     Dosage: 3000 IU, UNK
     Route: 058
     Dates: start: 20160602
  7. OXALIPLATIN. [Suspect]
     Active Substance: OXALIPLATIN
     Indication: COLORECTAL CANCER METASTATIC
     Dosage: 085 MG/M2, UNK
     Route: 042
     Dates: start: 20160426, end: 20160524
  8. DIPIDOLOR [Concomitant]
     Active Substance: PIRITRAMIDE
     Indication: PAIN
     Dosage: 15 MUG, Q6H
     Route: 058
     Dates: start: 20160602
  9. TORASEMIDE [Concomitant]
     Active Substance: TORSEMIDE
     Indication: OEDEMA
     Dosage: BID
     Route: 048
     Dates: start: 20160603

REACTIONS (1)
  - Rectal perforation [Not Recovered/Not Resolved]

NARRATIVE: CASE EVENT DATE: 20160531
